FAERS Safety Report 25229061 (Version 1)
Quarter: 2025Q2

REPORT INFORMATION
  Report Type: Spontaneous
  Country: JP (occurrence: JP)
  Receive Date: 20250423
  Receipt Date: 20250423
  Transmission Date: 20250716
  Serious: Yes (Other)
  Sender: ELI LILLY AND COMPANY
  Company Number: JP-ELI_LILLY_AND_COMPANY-JP202504015278

PATIENT
  Sex: Female

DRUGS (1)
  1. FORTEO [Suspect]
     Active Substance: TERIPARATIDE
     Indication: Product used for unknown indication
     Dosage: UNK, DAILY
     Route: 058
     Dates: start: 202501

REACTIONS (4)
  - Atrial fibrillation [Unknown]
  - Tooth disorder [Unknown]
  - Tooth discolouration [Unknown]
  - Blood pressure increased [Unknown]
